FAERS Safety Report 12503044 (Version 1)
Quarter: 2016Q2

REPORT INFORMATION
  Report Type: Spontaneous
  Country: AU (occurrence: AU)
  Receive Date: 20160628
  Receipt Date: 20160628
  Transmission Date: 20160815
  Serious: Yes (Other)
  Sender: FDA-Public Use
  Company Number: AU-AXELLIA-000947

PATIENT
  Age: 47 Year
  Sex: Female

DRUGS (4)
  1. IRBESARTAN. [Concomitant]
     Active Substance: IRBESARTAN
     Indication: HYPERTENSION
  2. TOBRAMYCIN. [Suspect]
     Active Substance: TOBRAMYCIN
     Indication: KERATITIS
     Dosage: 0.3% EYE DROPS HOURLY RIGHT EYE 2 DAYS POST-PRESENTATION TO IMPROVE COMPLIANCE
  3. CIPROFLOXACIN/CIPROFLOXACIN HYDROCHLORIDE/CIPROFLOXACIN LACTATE [Suspect]
     Active Substance: CIPROFLOXACIN
     Indication: KERATITIS
     Dosage: 0.3% EYE DROPS HOURLY
  4. HOMATROPINE [Suspect]
     Active Substance: HOMATROPINE\HOMATROPINE HYDROBROMIDE
     Indication: KERATITIS
     Dosage: 2 % EYE DROPS TDS RIGHT EYE

REACTIONS (5)
  - Drug resistance [Unknown]
  - Corneal scar [None]
  - Treatment noncompliance [None]
  - Eye irritation [Unknown]
  - Corneal oedema [None]
